FAERS Safety Report 5865844-8 (Version None)
Quarter: 2008Q3

REPORT INFORMATION
  Report Type: 
  Country: None (occurrence: None)
  Receive Date: 20080829
  Receipt Date: 20080819
  Transmission Date: 20090109
  Serious: Yes (Other)
  Sender: FDA-Public Use
  Company Number: US-ELI_LILLY_AND_COMPANY-US200807006226

PATIENT
  Sex: Female

DRUGS (17)
  1. FORTEO [Suspect]
     Dosage: 20 UG, DAILY (1/D)
     Dates: start: 20080110
  2. CALCIUM CARBONATE W/COLECALCIFEROL [Concomitant]
     Dosage: 600 MG, 2/D
  3. OCUVITE LUTEIN [Concomitant]
  4. CENTRUM SILVER [Concomitant]
     Dosage: UNK, DAILY (1/D)
  5. GLUCOSAMINE W/CHONDROITIN SULF./MANGAN./VIT C [Concomitant]
  6. MYLANTA /00416501/ [Concomitant]
     Indication: ABDOMINAL DISCOMFORT
     Dosage: UNK, EACH EVENING PRN
  7. ALLOPURINOL [Concomitant]
     Dosage: 300 MG, DAILY (1/D)
  8. FOSAMAX [Concomitant]
     Dosage: 70 MG, WEEKLY (1/W)
  9. OMEPRAZOLE [Concomitant]
     Dosage: 20 MBQ, DAILY (1/D)
  10. SOTALOL HCL [Concomitant]
     Dosage: 80 MG, DAILY (1/D)
  11. XANAX [Concomitant]
     Indication: ANXIETY
     Dosage: 0.5 MG, AS NEEDED
  12. BACLOFEN [Concomitant]
     Dosage: 5-10 MG, DAILY
  13. KLONOPIN [Concomitant]
     Dosage: 0.5 MG, EACH MORNING
  14. KLONOPIN [Concomitant]
     Dosage: 0.25 MG, EACH AFTERNOON
  15. KLONOPIN [Concomitant]
     Dosage: 0.5 MG, EACH EVENING
  16. COMBUNOX [Concomitant]
     Indication: PAIN
     Dosage: 400 MG-5 MG, DAILY PRN
  17. SYNTHROID [Concomitant]
     Dosage: 25 UG, DAILY (1/D)

REACTIONS (2)
  - BRONCHITIS [None]
  - CARDIAC FAILURE CONGESTIVE [None]
